FAERS Safety Report 6934212-X (Version None)
Quarter: 2010Q3

REPORT INFORMATION
  Report Type: 
  Country: None (occurrence: None)
  Receive Date: 20100820
  Receipt Date: 20100816
  Transmission Date: 20110219
  Serious: No
  Sender: FDA-Public Use
  Company Number: A0876811A

PATIENT
  Age: 36 Year
  Sex: Female

DRUGS (1)
  1. NEOTIGASON [Suspect]
     Route: 048
     Dates: start: 20100201, end: 20100731

REACTIONS (1)
  - DRUG EXPOSURE DURING PREGNANCY [None]
